FAERS Safety Report 20708117 (Version 3)
Quarter: 2022Q3

REPORT INFORMATION
  Report Type: Report from Study
  Country: US (occurrence: None)
  Receive Date: 20220414
  Receipt Date: 20220713
  Transmission Date: 20221027
  Serious: Yes (Hospitalization, Other)
  Sender: FDA-Public Use
  Company Number: US-ROCHE-3038403

PATIENT
  Age: 75 Year
  Sex: Male
  Weight: 130.95 kg

DRUGS (3)
  1. VENETOCLAX [Suspect]
     Active Substance: VENETOCLAX
     Indication: Chronic lymphocytic leukaemia
     Dosage: 50 MG PO QD DAYS 8-14, CYCLE 3, 100 MG PO QD DAYS 15- 21, CYCLE 3, 200 MG PO QD DAYS 22-28, CYCLE 3,
     Route: 048
     Dates: start: 20210428
  2. OBINUTUZUMAB [Suspect]
     Active Substance: OBINUTUZUMAB
     Indication: Chronic lymphocytic leukaemia
     Dosage: 100 MG IV ON C1D1, 900 MG IV ON C1D2, 1000 MG IV ON C1D8 + C1D15, C2-6D1?TOTAL DOSE ADMINISTERED THI
     Route: 042
     Dates: start: 20210428
  3. IBRUTINIB [Suspect]
     Active Substance: IBRUTINIB
     Indication: Chronic lymphocytic leukaemia
     Dosage: TOTAL DOSE ADMINISTERED THIS COURSE (DOSE): 0 MG?LAST ADMINISTERED DATE: 09/JUN/2021?PATIENTS RECEIV
     Route: 048
     Dates: start: 20210428

REACTIONS (10)
  - Hypoxia [Recovered/Resolved]
  - Cough [Recovered/Resolved]
  - Pyrexia [Recovered/Resolved]
  - Alanine aminotransferase increased [Recovered/Resolved]
  - Aspartate aminotransferase increased [Recovered/Resolved]
  - Atrial flutter [Recovering/Resolving]
  - Dyspnoea [Recovered/Resolved]
  - COVID-19 [Unknown]
  - Pneumonia [Recovered/Resolved]
  - Respiratory failure [Unknown]

NARRATIVE: CASE EVENT DATE: 20220120
